FAERS Safety Report 4443964-2 (Version None)
Quarter: 2004Q3

REPORT INFORMATION
  Report Type: 
  Country: None (occurrence: None)
  Receive Date: 20040729
  Receipt Date: 20030721
  Transmission Date: 20050211
  Serious: Yes (Hospitalization)
  Sender: FDA-Public Use
  Company Number: US-JNJFOC-20030705677

PATIENT
  Age: 82 Year
  Sex: Female

DRUGS (2)
  1. RISPERDAL [Suspect]
     Indication: AGGRESSION
     Dosage: 1.5 MG, 1 IN 1 DAY, ORAL
     Route: 048
     Dates: start: 20030401
  2. RISPERDAL [Suspect]
     Indication: PARANOIA
     Dosage: 1.5 MG, 1 IN 1 DAY, ORAL
     Route: 048
     Dates: start: 20030401

REACTIONS (3)
  - APATHY [None]
  - JOINT SWELLING [None]
  - SOMNOLENCE [None]
